FAERS Safety Report 25326730 (Version 1)
Quarter: 2025Q2

REPORT INFORMATION
  Report Type: Spontaneous
  Country: US (occurrence: US)
  Receive Date: 20250516
  Receipt Date: 20250516
  Transmission Date: 20250716
  Serious: No
  Sender: SANOFI AVENTIS
  Company Number: US-SANOFI-02521692

PATIENT
  Age: 41 Year
  Sex: Female

DRUGS (1)
  1. DUPIXENT [Suspect]
     Active Substance: DUPILUMAB
     Indication: Asthma
     Dates: start: 20250514, end: 20250514

REACTIONS (4)
  - Injection site urticaria [Unknown]
  - Dyspnoea [Unknown]
  - Cough [Unknown]
  - Injection site rash [Unknown]

NARRATIVE: CASE EVENT DATE: 20250514
